FAERS Safety Report 16719404 (Version 3)
Quarter: 2019Q3

REPORT INFORMATION
  Report Type: Spontaneous
  Country: IT (occurrence: IT)
  Receive Date: 20190820
  Receipt Date: 20190827
  Transmission Date: 20191005
  Serious: Yes (Death, Hospitalization, Other)
  Sender: FDA-Public Use
  Company Number: IT-JNJFOC-20190817775

PATIENT
  Age: 58 Year
  Sex: Male

DRUGS (2)
  1. RITUXIMAB. [Suspect]
     Active Substance: RITUXIMAB
     Indication: WALDENSTROM^S MACROGLOBULINAEMIA
     Dosage: UNK
     Route: 065
     Dates: start: 201801, end: 20180228
  2. IMBRUVICA [Suspect]
     Active Substance: IBRUTINIB
     Indication: WALDENSTROM^S MACROGLOBULINAEMIA
     Dosage: 420 MG/DAILY
     Route: 048
     Dates: start: 20180228, end: 20181224

REACTIONS (4)
  - Brain injury [Fatal]
  - Waldenstrom^s macroglobulinaemia refractory [Recovering/Resolving]
  - Cardiac arrest [Fatal]
  - Blood immunoglobulin M increased [Recovering/Resolving]
